FAERS Safety Report 9223519 (Version 1)
Quarter: 2013Q2

REPORT INFORMATION
  Report Type: Report from Study
  Country: US (occurrence: US)
  Receive Date: 20130410
  Receipt Date: 20130410
  Transmission Date: 20140414
  Serious: Yes (Other)
  Sender: FDA-Public Use
  Company Number: US-BAYER-2013-044552

PATIENT
  Age: 30 Year
  Sex: Male

DRUGS (1)
  1. BETASERON [Suspect]
     Indication: RELAPSING-REMITTING MULTIPLE SCLEROSIS
     Dosage: 8 MIU, QOD W/ BETAJECT
     Route: 058
     Dates: start: 20120930

REACTIONS (2)
  - Abasia [Not Recovered/Not Resolved]
  - Fall [Not Recovered/Not Resolved]
